FAERS Safety Report 6860952-7 (Version None)
Quarter: 2010Q3

REPORT INFORMATION
  Report Type: 
  Country: None (occurrence: None)
  Receive Date: 20100715
  Receipt Date: 20100706
  Transmission Date: 20110219
  Serious: Yes (Hospitalization, Other)
  Sender: FDA-Public Use
  Company Number: 015120

PATIENT
  Sex: Male

DRUGS (7)
  1. KEPPRA [Suspect]
     Dosage: (1000MG TABLETS; 9 TABLETS; INTAKE NOT ASSURED ORAL)
     Route: 048
  2. LORAZEPAM [Concomitant]
     Dosage: (TOTAL AMOUNT 100MG; 100TABLETS ORAL)
     Route: 048
  3. ZOPICLON (ZOPICLON) (NOT SPECIFIED) [Suspect]
     Dosage: (ZOPICLON 7.5; 20 TABLETS; TOTAL AMOUNT 150MG; INTAKE NOT ASSURED ORAL)
     Route: 048
  4. ERGENYL (ERGENYL) (NOT SPECIFIED) [Suspect]
     Dosage: (500; 20 TABLETS; TOTAL AMOUNT 10,000MG ORAL)
     Route: 048
  5. CITALOPRAM HYDROBROMIDE [Suspect]
     Dosage: (8 TABLETS; TOTAL AMOUNT 160MG; INTAKE NOT ASSURED ORAL)
     Route: 048
  6. TRICYCLIC ANTIDEPRESSANTS (TRICYCLIC ANTIDEPRESSANTS) [Suspect]
     Dosage: (ORAL)
     Route: 048
  7. ALCOHOL /00002101/ (ALCOHOL) [Suspect]
     Dosage: (ORAL)
     Route: 048

REACTIONS (3)
  - ALCOHOL USE [None]
  - INCORRECT DOSE ADMINISTERED [None]
  - SUICIDE ATTEMPT [None]
